FAERS Safety Report 20056285 (Version 3)
Quarter: 2022Q3

REPORT INFORMATION
  Report Type: Spontaneous
  Country: US (occurrence: US)
  Receive Date: 20211111
  Receipt Date: 20220719
  Transmission Date: 20221027
  Serious: No
  Sender: FDA-Public Use
  Company Number: US-LUPIN PHARMACEUTICALS INC.-2021-21813

PATIENT
  Age: 3 Year
  Sex: Male

DRUGS (1)
  1. ALBUTEROL SULFATE [Suspect]
     Active Substance: ALBUTEROL SULFATE
     Indication: Asthma
     Dosage: UNK, 2 PUFFS Q 4 HRS, THEN, Q 6 HRS, Q 8 HRS, THEN Q 12 HRS FOR A WEEK DEPENDING
     Dates: start: 20211019

REACTIONS (3)
  - Device delivery system issue [Unknown]
  - Intentional device use issue [Unknown]
  - No adverse event [Unknown]

NARRATIVE: CASE EVENT DATE: 20210101
